FAERS Safety Report 6881547-5 (Version None)
Quarter: 2010Q3

REPORT INFORMATION
  Report Type: 
  Country: None (occurrence: None)
  Receive Date: 20100729
  Receipt Date: 20100722
  Transmission Date: 20110219
  Serious: Yes (Other)
  Sender: FDA-Public Use
  Company Number: US-BIOGENIDEC-2010BI025293

PATIENT
  Age: 44 Year
  Sex: Female

DRUGS (4)
  1. AVONEX [Suspect]
     Indication: MULTIPLE SCLEROSIS
     Route: 030
     Dates: start: 20100715
  2. LORAZEPAM [Concomitant]
     Indication: EPILEPSY
  3. TOPAMAX [Concomitant]
     Indication: EPILEPSY
  4. MEDICATION NOS [Concomitant]
     Indication: EPILEPSY

REACTIONS (1)
  - PETIT MAL EPILEPSY [None]
